FAERS Safety Report 24048508 (Version 1)
Quarter: 2024Q3

REPORT INFORMATION
  Report Type: Spontaneous
  Country: US (occurrence: US)
  Receive Date: 20240704
  Receipt Date: 20240704
  Transmission Date: 20241017
  Serious: No
  Sender: Haleon PLC
  Company Number: US-HALEON-2184821

PATIENT
  Age: 56 Year
  Sex: Female

DRUGS (1)
  1. ABREVA [Suspect]
     Active Substance: DOCOSANOL
     Indication: Oral herpes
     Dates: start: 20240625, end: 20240701

REACTIONS (4)
  - Mouth haemorrhage [Not Recovered/Not Resolved]
  - Oral herpes [Unknown]
  - Condition aggravated [Unknown]
  - Inappropriate schedule of product administration [Unknown]

NARRATIVE: CASE EVENT DATE: 20240701
